FAERS Safety Report 20354791 (Version 1)
Quarter: 2022Q1

REPORT INFORMATION
  Report Type: Spontaneous
  Country: US (occurrence: None)
  Receive Date: 20220119
  Receipt Date: 20220119
  Transmission Date: 20220423
  Serious: Yes (Other)
  Sender: FDA-Public Use
  Company Number: None

PATIENT
  Age: 67 Year
  Sex: Female
  Weight: 79.4 kg

DRUGS (1)
  1. REVLIMID [Suspect]
     Active Substance: LENALIDOMIDE
     Indication: Plasma cell myeloma
     Dosage: 10MG DAILY X21 DAYS ORAL?
     Route: 048
     Dates: start: 20210813, end: 20220119

REACTIONS (2)
  - Drug ineffective [None]
  - Disease progression [None]

NARRATIVE: CASE EVENT DATE: 20220119
